FAERS Safety Report 16474943 (Version 1)
Quarter: 2019Q2

REPORT INFORMATION
  Report Type: Spontaneous
  Country: US (occurrence: US)
  Receive Date: 20190625
  Receipt Date: 20190625
  Transmission Date: 20190711
  Serious: Yes (Hospitalization, Other)
  Sender: FDA-Public Use
  Company Number: US-BAYER-2019-115572

PATIENT
  Age: 66 Year
  Sex: Female
  Weight: 57.6 kg

DRUGS (4)
  1. IBUPROFEN. [Concomitant]
     Active Substance: IBUPROFEN
     Dosage: UNK
  2. BACTRIM [Concomitant]
     Active Substance: SULFAMETHOXAZOLE\TRIMETHOPRIM
     Dosage: UNK
  3. ALEVE [Suspect]
     Active Substance: NAPROXEN SODIUM
     Indication: PAIN
     Dosage: 500 MG, BID
     Route: 048
     Dates: start: 20181105
  4. ACETYLSALICYLIC ACID [Concomitant]
     Active Substance: ASPIRIN
     Dosage: UNK

REACTIONS (14)
  - Oedema peripheral [Not Recovered/Not Resolved]
  - Urine output decreased [None]
  - Pulmonary congestion [None]
  - Nephrogenic anaemia [None]
  - Restrictive pulmonary disease [None]
  - Medical device site haemorrhage [Recovered/Resolved]
  - Acute kidney injury [Recovered/Resolved]
  - Chronic kidney disease [Not Recovered/Not Resolved]
  - Dyspnoea [Not Recovered/Not Resolved]
  - Vitamin B12 deficiency [None]
  - Hyperkalaemia [None]
  - Cardiac failure congestive [Not Recovered/Not Resolved]
  - Blood pressure increased [None]
  - Hyperparathyroidism secondary [None]

NARRATIVE: CASE EVENT DATE: 20190207
